FAERS Safety Report 21237375 (Version 1)
Quarter: 2022Q3

REPORT INFORMATION
  Report Type: Spontaneous
  Country: US (occurrence: US)
  Receive Date: 20220822
  Receipt Date: 20220822
  Transmission Date: 20221026
  Serious: No
  Sender: FDA-Public Use
  Company Number: US-SA-SAC20220815000794

PATIENT
  Age: 7 Year
  Sex: Female

DRUGS (7)
  1. DUPIXENT [Suspect]
     Active Substance: DUPILUMAB
     Indication: Dermatitis atopic
     Dosage: 300 MG, Q4W
     Route: 058
     Dates: start: 20220217
  2. DUPIXENT [Suspect]
     Active Substance: DUPILUMAB
     Indication: Alopecia
  3. DEXAMETHASONE ACETATE [Concomitant]
     Active Substance: DEXAMETHASONE ACETATE
     Dosage: UNK
  4. MINOXIDIL [Concomitant]
     Active Substance: MINOXIDIL
     Dosage: UNK
  5. BIOTIN [Concomitant]
     Active Substance: BIOTIN
     Dosage: UNK
  6. VITAMIN D3 [Concomitant]
     Active Substance: CHOLECALCIFEROL
     Dosage: UNK
  7. ZINC CHLORIDE [Concomitant]
     Active Substance: ZINC CHLORIDE
     Dosage: UNK

REACTIONS (3)
  - Eczema [Unknown]
  - Alopecia [Unknown]
  - Drug ineffective for unapproved indication [Unknown]

NARRATIVE: CASE EVENT DATE: 20220101
